FAERS Safety Report 11252612 (Version 1)
Quarter: 2015Q3

REPORT INFORMATION
  Report Type: Spontaneous
  Country: CA (occurrence: CA)
  Receive Date: 20150708
  Receipt Date: 20150708
  Transmission Date: 20151125
  Serious: Yes (Death, Other)
  Sender: FDA-Public Use
  Company Number: CA-GLAXOSMITHKLINE-A1079079A

PATIENT
  Sex: Female

DRUGS (5)
  1. UNSPECIFIED CREAM [Suspect]
     Active Substance: UNSPECIFIED INGREDIENT
     Indication: HYPERKERATOSIS
     Route: 061
  2. VOTRIENT [Suspect]
     Active Substance: PAZOPANIB HYDROCHLORIDE
     Indication: SARCOMA
     Route: 065
  3. HYDROCORTISONE. [Suspect]
     Active Substance: HYDROCORTISONE
     Indication: HYPERKERATOSIS
     Route: 065
  4. HYDROCORTISONE. [Suspect]
     Active Substance: HYDROCORTISONE
     Indication: BLISTER
  5. UNSPECIFIED CREAM [Suspect]
     Active Substance: UNSPECIFIED INGREDIENT
     Indication: BLISTER

REACTIONS (5)
  - Death [Fatal]
  - Drug ineffective [Unknown]
  - Chest pain [Unknown]
  - Hyperkeratosis [Not Recovered/Not Resolved]
  - Blister [Not Recovered/Not Resolved]
